FAERS Safety Report 6485771-5 (Version None)
Quarter: 2009Q4

REPORT INFORMATION
  Report Type: 
  Country: None (occurrence: None)
  Receive Date: 20091207
  Receipt Date: 20091117
  Transmission Date: 20100525
  Serious: Yes (Death)
  Sender: FDA-Public Use
  Company Number: 2009AC000412

PATIENT
  Sex: Male

DRUGS (1)
  1. DIGOXIN [Suspect]
     Dosage: PO
     Route: 048

REACTIONS (7)
  - ANHEDONIA [None]
  - ANXIETY [None]
  - ECONOMIC PROBLEM [None]
  - FEAR [None]
  - MULTIPLE INJURIES [None]
  - PAIN [None]
  - THERAPEUTIC AGENT TOXICITY [None]
